FAERS Safety Report 21845190 (Version 1)
Quarter: 2023Q1

REPORT INFORMATION
  Report Type: Spontaneous
  Country: US (occurrence: None)
  Receive Date: 20230110
  Receipt Date: 20230110
  Transmission Date: 20230418
  Serious: Yes (Hospitalization, Other)
  Sender: FDA-Public Use
  Company Number: US-Emmaus Medical, Inc.-EMM202212-000319

PATIENT
  Age: 36 Year
  Sex: Male

DRUGS (1)
  1. ENDARI [Suspect]
     Active Substance: GLUTAMINE
     Indication: Sickle cell disease
     Dosage: 15GM (THREE PACKETS OF 5GM EACH BY MOUTH)
     Route: 048
     Dates: start: 20221208, end: 20221218

REACTIONS (4)
  - Condition aggravated [Unknown]
  - Hospitalisation [Unknown]
  - Sickle cell anaemia with crisis [Unknown]
  - Adverse event [Unknown]

NARRATIVE: CASE EVENT DATE: 20221218
